APPROVED DRUG PRODUCT: OCTREOTIDE ACETATE
Active Ingredient: OCTREOTIDE ACETATE
Strength: EQ 0.2MG BASE/ML
Dosage Form/Route: INJECTABLE;INJECTION
Application: A090986 | Product #001
Applicant: WOCKHARDT USA INC
Approved: May 11, 2011 | RLD: No | RS: No | Type: DISCN